FAERS Safety Report 7906514-1 (Version None)
Quarter: 2011Q4

REPORT INFORMATION
  Report Type: 
  Country: None (occurrence: None)
  Receive Date: 20111110
  Receipt Date: 20111028
  Transmission Date: 20120403
  Serious: Yes (Hospitalization)
  Sender: FDA-Public Use
  Company Number: US-ELI_LILLY_AND_COMPANY-US201103005794

PATIENT
  Sex: Female

DRUGS (4)
  1. FORTEO [Suspect]
     Indication: OSTEOPOROSIS
     Dosage: 20 UG, QD
     Route: 065
     Dates: start: 20110101
  2. FORTEO [Suspect]
     Dosage: 20 UG, QD
     Route: 065
  3. PRENATAL VITAMINS                  /01549301/ [Concomitant]
  4. CALCIUM [Concomitant]

REACTIONS (5)
  - DEVICE MALFUNCTION [None]
  - MALAISE [None]
  - PALPITATIONS [None]
  - VISUAL ACUITY REDUCED [None]
  - PAIN [None]
